FAERS Safety Report 6300632-X (Version None)
Quarter: 2009Q3

REPORT INFORMATION
  Report Type: 
  Country: None (occurrence: None)
  Receive Date: 20090806
  Receipt Date: 20090731
  Transmission Date: 20100115
  Serious: No
  Sender: FDA-Public Use
  Company Number: US-ABBOTT-09P-163-0589129-00

PATIENT
  Sex: Female
  Weight: 111.23 kg

DRUGS (4)
  1. DEPAKOTE ER [Suspect]
     Indication: CONVULSION
     Dosage: 1-500MG TABLET MORNING/2- 500MG EVENING
     Route: 048
     Dates: start: 20090301
  2. DEPAKOTE ER [Suspect]
     Indication: BIPOLAR DISORDER
  3. RISPERDAL [Concomitant]
     Indication: BIPOLAR DISORDER
     Route: 048
  4. CITALOPRAM [Concomitant]
     Indication: DEPRESSION
     Route: 048

REACTIONS (1)
  - ALOPECIA [None]
